FAERS Safety Report 6222621-6 (Version None)
Quarter: 2009Q2

REPORT INFORMATION
  Report Type: 
  Country: None (occurrence: None)
  Receive Date: 20090611
  Receipt Date: 20090602
  Transmission Date: 20091009
  Serious: Yes (Hospitalization, Other)
  Sender: FDA-Public Use
  Company Number: FR-NOVOPROD-288016

PATIENT
  Age: 74 Year
  Sex: Female
  Weight: 58 kg

DRUGS (11)
  1. NORDITROPIN [Suspect]
     Indication: GROWTH HORMONE DEFICIENCY
     Dosage: .3 MG, UNK
     Route: 058
     Dates: start: 20070724, end: 20090101
  2. HYDROCORTISONE [Concomitant]
     Dosage: 20 MG, UNK
     Dates: start: 20030201
  3. FOSAMAX [Concomitant]
     Dosage: 140 MG, UNK
  4. LEXOMIL [Concomitant]
     Dosage: 24 MG, UNK
  5. MINIRIN [Concomitant]
     Dosage: .3 MG, UNK
     Dates: start: 20070725, end: 20090407
  6. CACIT D3 [Concomitant]
     Dosage: 1 DF
     Dates: start: 20070323
  7. FORLAX [Concomitant]
     Dosage: 1 DF
     Dates: start: 20070323, end: 20090101
  8. LEVOTHYROX [Concomitant]
     Dosage: 125 UG, UNK
     Dates: start: 20070725
  9. PANTOPRAZOLE SODIUM [Concomitant]
     Dosage: 20 MG, UNK
     Dates: start: 20090308
  10. PREVISCAN                          /00261401/ [Concomitant]
     Dosage: 5 MG, UNK
     Dates: start: 20090409
  11. INNOHEP                            /00889602/ [Concomitant]
     Dosage: 1 DF
     Dates: start: 20090308

REACTIONS (4)
  - BACTERAEMIA [None]
  - ENTEROBACTER BACTERAEMIA [None]
  - GASTRIC CANCER [None]
  - JUGULAR VEIN THROMBOSIS [None]
